FAERS Safety Report 25457438 (Version 1)
Quarter: 2025Q2

REPORT INFORMATION
  Report Type: Spontaneous
  Country: US (occurrence: US)
  Receive Date: 20250619
  Receipt Date: 20250619
  Transmission Date: 20250717
  Serious: No
  Sender: MERCK SHARP & DOHME LLC
  Company Number: US-009507513-2287872

PATIENT
  Sex: Female
  Weight: 80.739 kg

DRUGS (29)
  1. SOTATERCEPT [Suspect]
     Active Substance: SOTATERCEPT
  2. SOTATERCEPT [Suspect]
     Active Substance: SOTATERCEPT
  3. SOTATERCEPT [Suspect]
     Active Substance: SOTATERCEPT
  4. SOTATERCEPT [Suspect]
     Active Substance: SOTATERCEPT
  5. REMODULIN [Suspect]
     Active Substance: TREPROSTINIL
     Indication: Pulmonary arterial hypertension
     Route: 058
     Dates: start: 20230106
  6. METOPROLOL TARTRATE [Concomitant]
     Active Substance: METOPROLOL TARTRATE
  7. HYOSCYAMINE SULFATE [Concomitant]
     Active Substance: HYOSCYAMINE SULFATE
  8. AMBRISENTAN [Concomitant]
     Active Substance: AMBRISENTAN
  9. MAGNESIUM OXIDE [Concomitant]
     Active Substance: MAGNESIUM OXIDE
  10. PANTOPRAZOLE SODIUM [Concomitant]
     Active Substance: PANTOPRAZOLE SODIUM
  11. XELJANZ [Concomitant]
     Active Substance: TOFACITINIB CITRATE
  12. SILDENAFIL [Concomitant]
     Active Substance: SILDENAFIL
  13. CREON [Concomitant]
     Active Substance: PANCRELIPASE AMYLASE\PANCRELIPASE LIPASE\PANCRELIPASE PROTEASE
  14. SERTRALINE [Concomitant]
     Active Substance: SERTRALINE HYDROCHLORIDE
  15. VITAMIN D [Concomitant]
     Active Substance: VITAMIN D NOS
  16. BIOTIN [Concomitant]
     Active Substance: BIOTIN
  17. RESTASIS [Concomitant]
     Active Substance: CYCLOSPORINE
  18. OXYGEN [Concomitant]
     Active Substance: OXYGEN
  19. ASPIRIN [Concomitant]
     Active Substance: ASPIRIN
  20. CALCIUM [Concomitant]
     Active Substance: CALCIUM
  21. PROBIOTICS NOS [Concomitant]
     Active Substance: PROBIOTICS NOS
  22. SPIRONOLACTONE [Concomitant]
     Active Substance: SPIRONOLACTONE
  23. DIGOXIN [Concomitant]
     Active Substance: DIGOXIN
  24. MONTELUKAST SODIUM [Concomitant]
     Active Substance: MONTELUKAST SODIUM
  25. Mesalamine extended release [Concomitant]
  26. LOPERAMIDE [Concomitant]
     Active Substance: LOPERAMIDE
  27. SYMBICORT [Concomitant]
     Active Substance: BUDESONIDE\FORMOTEROL FUMARATE DIHYDRATE
  28. ATROPINE\DIPHENOXYLATE [Concomitant]
     Active Substance: ATROPINE\DIPHENOXYLATE
  29. METHIMAZOLE [Concomitant]
     Active Substance: METHIMAZOLE

REACTIONS (1)
  - Platelet count abnormal [Unknown]
